FAERS Safety Report 10434612 (Version 3)
Quarter: 2014Q4

REPORT INFORMATION
  Report Type: Report from Study
  Country: US (occurrence: US)
  Receive Date: 20140905
  Receipt Date: 20141016
  Transmission Date: 20150528
  Serious: Yes (Death, Hospitalization)
  Sender: FDA-Public Use
  Company Number: US-ACTELION-A-US2014-104496

PATIENT
  Age: 85 Year
  Sex: Female

DRUGS (1)
  1. TRACLEER [Suspect]
     Active Substance: BOSENTAN\BOSENTAN MONOHYDRATE
     Indication: PULMONARY ARTERIAL HYPERTENSION
     Dosage: UNK
     Route: 048
     Dates: end: 20141003

REACTIONS (9)
  - Chronic kidney disease [Fatal]
  - Dialysis [Fatal]
  - Urinary tract infection [Unknown]
  - Fall [Unknown]
  - Cerebral haematoma [Unknown]
  - Subdural haematoma [Fatal]
  - Head injury [Unknown]
  - Hypotension [Unknown]
  - Gait disturbance [Unknown]

NARRATIVE: CASE EVENT DATE: 20140805
